FAERS Safety Report 7094095-7 (Version None)
Quarter: 2010Q4

REPORT INFORMATION
  Report Type: 
  Country: None (occurrence: None)
  Receive Date: 20101109
  Receipt Date: 20101109
  Transmission Date: 20110411
  Serious: Yes (Life-Threatening)
  Sender: FDA-Public Use
  Company Number: None

PATIENT
  Age: 58 Year
  Sex: Female
  Weight: 72.5755 kg

DRUGS (1)
  1. TEVA CLINDAMYCIN 300 MG TEVA USA [Suspect]
     Indication: NECK MASS
     Dosage: 300 MG 4/DAY PO 1 DAY 4 DOSES OR 4 CAPS
     Route: 048
     Dates: start: 20101102, end: 20101103

REACTIONS (2)
  - ABDOMINAL DISCOMFORT [None]
  - PAIN [None]
